FAERS Safety Report 20732409 (Version 1)
Quarter: 2022Q2

REPORT INFORMATION
  Report Type: Spontaneous
  Country: US (occurrence: US)
  Receive Date: 20220420
  Receipt Date: 20220420
  Transmission Date: 20220721
  Serious: Yes (Other)
  Sender: FDA-Public Use
  Company Number: US-PFIZER INC-202200541366

PATIENT
  Age: 76 Year
  Sex: Female
  Weight: 73.48 kg

DRUGS (1)
  1. CHANTIX [Suspect]
     Active Substance: VARENICLINE TARTRATE
     Indication: Smoking cessation therapy
     Dosage: 1MG TWICE A DAY BY MOUTH
     Route: 048
     Dates: start: 2019

REACTIONS (5)
  - Angiopathy [Unknown]
  - Body height decreased [Unknown]
  - Vomiting [Recovered/Resolved]
  - Diarrhoea [Recovered/Resolved]
  - Tobacco user [Unknown]
